FAERS Safety Report 16583821 (Version 1)
Quarter: 2019Q3

REPORT INFORMATION
  Report Type: Spontaneous
  Country: DE (occurrence: DE)
  Receive Date: 20190717
  Receipt Date: 20190717
  Transmission Date: 20191004
  Serious: Yes (Death, Life-Threatening, Hospitalization)
  Sender: FDA-Public Use
  Company Number: DE-TEVA-2019-DE-1078071

PATIENT
  Age: 84 Year
  Sex: Female

DRUGS (6)
  1. OXYCODONE [Suspect]
     Active Substance: OXYCODONE
     Dosage: 10 MG, 1-0-1-0
  2. AMITRIPTYLIN [Concomitant]
     Active Substance: AMITRIPTYLINE
     Dosage: 25 MG, 0-0-1-0
  3. ZOLPIDEM [Concomitant]
     Active Substance: ZOLPIDEM TARTRATE
     Dosage: 10 MG, 0-0-0-1
  4. IBEROGAST [Concomitant]
     Active Substance: HERBALS
     Dosage: NK MG, DEMAND; 20-20-20-0, DROPS
  5. TRAMADOL. [Suspect]
     Active Substance: TRAMADOL
     Dosage: 100 MG, 1-0-1-0
  6. OMEPRAZOLE. [Concomitant]
     Active Substance: OMEPRAZOLE
     Dosage: 40 MG, 0-0-1-0

REACTIONS (2)
  - Product monitoring error [Unknown]
  - Faecaloma [Unknown]

NARRATIVE: CASE EVENT DATE: 20170429
